FAERS Safety Report 15512549 (Version 1)
Quarter: 2018Q4

REPORT INFORMATION
  Report Type: Spontaneous
  Country: US (occurrence: US)
  Receive Date: 20181017
  Receipt Date: 20181017
  Transmission Date: 20190205
  Serious: Yes (Other)
  Sender: FDA-Public Use
  Company Number: None

PATIENT
  Age: 35 Year
  Sex: Female
  Weight: 101.15 kg

DRUGS (1)
  1. AIMOVIG [Suspect]
     Active Substance: ERENUMAB-AOOE
     Indication: MIGRAINE
     Route: 058

REACTIONS (4)
  - Migraine [None]
  - Alopecia [None]
  - Diarrhoea [None]
  - Nausea [None]

NARRATIVE: CASE EVENT DATE: 20181016
